FAERS Safety Report 8391287 (Version 9)
Quarter: 2012Q4

REPORT INFORMATION
  Report Type: 
  Country: IT (occurrence: IT)
  Receive Date: 20120206
  Receipt Date: 20121105
  Transmission Date: 20130627
  Serious: Yes (Hospitalization)
  Sender: FDA-Public Use
  Company Number: IT-GENZYME-POMP-1001982

PATIENT
  Age: 0 None
  Sex: Male

DRUGS (8)
  1. MYOZYME [Suspect]
     Indication: GLYCOGEN STORAGE DISEASE TYPE II
     Dosage: 40 mg/kg, q2w
     Route: 042
  2. MYOZYME [Suspect]
     Dosage: 20 mg/kg, qw
     Route: 042
     Dates: start: 20110709
  3. MYOZYME [Suspect]
     Dosage: 13.5 mg/kg, q2w
     Route: 042
     Dates: start: 20111205, end: 20120118
  4. MYOZYME [Suspect]
     Dosage: 13.5 mg/kg, UNK
     Route: 042
     Dates: start: 20110709, end: 20111205
  5. DIURETICS [Concomitant]
     Indication: DISEASE PROGRESSION
     Dosage: UNK UNK, UNK
     Route: 065
  6. PROPRANOLOL [Concomitant]
     Indication: DISEASE PROGRESSION
     Dosage: 0.5 mg/kg, UNK
     Route: 065
  7. CHLORPHENAMINE [Concomitant]
     Indication: PREMEDICATION
     Dosage: UNK UNK, UNK
     Route: 065
  8. HYDROCORTISONE [Concomitant]
     Indication: PREMEDICATION
     Dosage: UNK UNK, UNK
     Route: 065

REACTIONS (4)
  - Disease progression [Not Recovered/Not Resolved]
  - Drug ineffective [Not Recovered/Not Resolved]
  - Hypertrophic cardiomyopathy [Not Recovered/Not Resolved]
  - Hypotonia [Not Recovered/Not Resolved]
